FAERS Safety Report 21660788 (Version 2)
Quarter: 2022Q4

REPORT INFORMATION
  Report Type: Spontaneous
  Country: US (occurrence: US)
  Receive Date: 20221130
  Receipt Date: 20221230
  Transmission Date: 20230112
  Serious: No
  Sender: FDA-Public Use
  Company Number: US-HETERO-HET2022US02975

PATIENT
  Sex: Female

DRUGS (1)
  1. PANTOPRAZOLE [Suspect]
     Active Substance: PANTOPRAZOLE
     Indication: Gastrooesophageal reflux disease
     Dosage: 40 MG, ONCE A DAY
     Route: 048

REACTIONS (3)
  - Product substitution issue [Unknown]
  - Illness [Not Recovered/Not Resolved]
  - Drug ineffective [Unknown]
